FAERS Safety Report 5171530-2 (Version None)
Quarter: 2006Q4

REPORT INFORMATION
  Report Type: 
  Country: None (occurrence: None)
  Receive Date: 20061213
  Receipt Date: 20060414
  Transmission Date: 20070319
  Serious: Yes (Hospitalization)
  Sender: FDA-Public Use
  Company Number: US-AMGEN-STX176362

PATIENT
  Sex: Female

DRUGS (9)
  1. ENBREL [Suspect]
     Indication: RHEUMATOID ARTHRITIS
     Route: 058
     Dates: start: 20040601, end: 20051201
  2. NORVASC [Concomitant]
  3. ATENOLOL [Concomitant]
  4. ACTONEL [Concomitant]
  5. TRIAMTERENE [Concomitant]
  6. LISINOPRIL [Concomitant]
  7. VITAMIN CAP [Concomitant]
  8. OSCAL [Concomitant]
  9. PLAQUENIL [Concomitant]

REACTIONS (4)
  - ANAEMIA [None]
  - ARTHRITIS BACTERIAL [None]
  - BETA HAEMOLYTIC STREPTOCOCCAL INFECTION [None]
  - CELLULITIS [None]
